FAERS Safety Report 25871329 (Version 1)
Quarter: 2025Q4

REPORT INFORMATION
  Report Type: Spontaneous
  Country: TR (occurrence: TR)
  Receive Date: 20251001
  Receipt Date: 20251001
  Transmission Date: 20260118
  Serious: Yes (Other)
  Sender: ELI LILLY AND COMPANY
  Company Number: TR-ELI_LILLY_AND_COMPANY-TR202507027114

PATIENT
  Age: 61 Year
  Sex: Male

DRUGS (1)
  1. IXEKIZUMAB [Suspect]
     Active Substance: IXEKIZUMAB
     Indication: Psoriatic arthropathy
     Dosage: 80 MG, MONTHLY (1/M)
     Route: 065

REACTIONS (7)
  - Hernia [Unknown]
  - Iatrogenic injury [Unknown]
  - Post procedural discharge [Unknown]
  - Thrombocytopenia [Recovering/Resolving]
  - Anisocytosis [Unknown]
  - Hypochromasia [Unknown]
  - Platelet disorder [Unknown]

NARRATIVE: CASE EVENT DATE: 20240101
